FAERS Safety Report 5782502-9 (Version None)
Quarter: 2008Q2

REPORT INFORMATION
  Report Type: 
  Country: None (occurrence: None)
  Receive Date: 20080623
  Receipt Date: 20080611
  Transmission Date: 20081010
  Serious: Yes (Other)
  Sender: FDA-Public Use
  Company Number: JP-PFIZER INC-2008045367

PATIENT
  Sex: Female

DRUGS (3)
  1. XALATAN [Suspect]
     Indication: OPEN ANGLE GLAUCOMA
     Dosage: DAILY DOSE:1DROP
     Route: 031
     Dates: start: 20080228, end: 20080415
  2. NEUROVITAN [Concomitant]
     Route: 048
  3. CIRCULETIN [Concomitant]
     Route: 048

REACTIONS (4)
  - EYE PAIN [None]
  - INTRAOCULAR PRESSURE INCREASED [None]
  - KERATITIS HERPETIC [None]
  - PUNCTATE KERATITIS [None]
